FAERS Safety Report 6040601-0 (Version None)
Quarter: 2009Q1

REPORT INFORMATION
  Report Type: 
  Country: None (occurrence: None)
  Receive Date: 20090116
  Receipt Date: 20080414
  Transmission Date: 20090719
  Serious: No
  Sender: FDA-Public Use
  Company Number: US-BRISTOL-MYERS SQUIBB COMPANY-14150437

PATIENT
  Age: 15 Year
  Sex: Female

DRUGS (2)
  1. ABILIFY [Suspect]
     Indication: BIPOLAR DISORDER
     Dosage: THERAPY DURATION: 6-8 MONTHS
     Route: 048
     Dates: start: 20070101, end: 20070101
  2. WELLBUTRIN XL [Concomitant]
     Dosage: 1 DOSAGE FORM = 300 (UNIT NOT SPECIFIED)

REACTIONS (1)
  - TARDIVE DYSKINESIA [None]
